FAERS Safety Report 23516070 (Version 1)
Quarter: 2024Q1

REPORT INFORMATION
  Report Type: 
  Country: None (occurrence: None)
  Receive Date: 20240213
  Receipt Date: 20240213
  Transmission Date: 20240409
  Serious: No
  Sender: FDA-Public Use
  Company Number: BR-ROCHE-3470919

PATIENT
  Age: 13 Year
  Weight: 48.5 kg

DRUGS (20)
  1. OBINUTUZUMAB [Suspect]
     Active Substance: OBINUTUZUMAB
     Dates: start: 20220512
  2. MYCOPHENOLATE MOFETIL [Suspect]
     Active Substance: MYCOPHENOLATE MOFETIL
     Dosage: ON 12/SEP/2023, 22/SEP/2023, SHE RECEIVED THE MOST RECENT DOSE (500 MG) OF MYCOPHENOLATE MOFETIL PRI
     Dates: start: 20220512
  3. OMEPRAZOLE [Concomitant]
     Active Substance: OMEPRAZOLE
     Dates: start: 2020
  4. OSCAL D [Concomitant]
     Active Substance: CALCIUM CARBONATE\CHOLECALCIFEROL
     Dates: start: 20220429
  5. ENALAPRIL [Concomitant]
     Active Substance: ENALAPRIL
     Dates: start: 20220803
  6. ATENOLOL [Concomitant]
     Active Substance: ATENOLOL
     Dates: start: 20220907
  7. SODIUM BICARBONATE [Concomitant]
     Active Substance: SODIUM BICARBONATE
     Dates: start: 20220924
  8. MOMETASONE FUROATE [Concomitant]
     Active Substance: MOMETASONE FUROATE
     Dates: start: 20230321
  9. AMLODIPINE [Concomitant]
     Active Substance: AMLODIPINE BESYLATE
     Dates: start: 20230424
  10. CEFUROXIME [Concomitant]
     Active Substance: CEFUROXIME
     Dates: start: 20230718
  11. PREDNISONE [Concomitant]
     Active Substance: PREDNISONE
     Dates: start: 20230909
  12. HYDROXYCHLOROQUINE [Concomitant]
     Active Substance: HYDROXYCHLOROQUINE
     Dates: start: 20191219
  13. HYDROCHLOROTHIAZIDE [Concomitant]
     Active Substance: HYDROCHLOROTHIAZIDE
     Dates: start: 20220929
  14. AMOXICILLIN\CLAVULANATE POTASSIUM [Concomitant]
     Active Substance: AMOXICILLIN\CLAVULANATE POTASSIUM
     Dates: start: 20231121, end: 20231128
  15. OTOCIRIAX [Concomitant]
     Dates: start: 20231224, end: 20240107
  16. OTOCIRIAX [Concomitant]
     Dates: start: 20240130
  17. CIPROFLOXACIN [Concomitant]
     Active Substance: CIPROFLOXACIN
     Dosage: 500 TABLET
     Dates: start: 20231201, end: 20231224
  18. CIPROFLOXACIN [Concomitant]
     Active Substance: CIPROFLOXACIN
     Dates: start: 20240130
  19. DYMISTA [Concomitant]
     Active Substance: AZELASTINE HYDROCHLORIDE\FLUTICASONE PROPIONATE
     Dosage: 1 SPRAY
     Dates: start: 20240130
  20. CLINARIS [Concomitant]
     Dates: start: 20240130

REACTIONS (1)
  - Mastoiditis [None]

NARRATIVE: CASE EVENT DATE: 20231129
